FAERS Safety Report 12802163 (Version 1)
Quarter: 2016Q3

REPORT INFORMATION
  Report Type: Spontaneous
  Country: US (occurrence: US)
  Receive Date: 20160930
  Receipt Date: 20160930
  Transmission Date: 20161109
  Serious: Yes (Other)
  Sender: FDA-Public Use
  Company Number: None

PATIENT
  Age: 4 Year
  Sex: Female
  Weight: 16.2 kg

DRUGS (1)
  1. BABY TEETHING (HYLAND HOMEOPATHIC) [Suspect]
     Active Substance: HOMEOPATHICS
     Indication: TEETHING
     Route: 060
     Dates: start: 20121201, end: 20130601

REACTIONS (6)
  - Nervous system disorder [None]
  - Muscle twitching [None]
  - Dyskinesia [None]
  - Musculoskeletal stiffness [None]
  - Seizure [None]
  - Product use issue [None]

NARRATIVE: CASE EVENT DATE: 20130601
